FAERS Safety Report 19035838 (Version 1)
Quarter: 2021Q1

REPORT INFORMATION
  Report Type: Spontaneous
  Country: CA (occurrence: CA)
  Receive Date: 20210321
  Receipt Date: 20210321
  Transmission Date: 20210420
  Serious: Yes (Death)
  Sender: FDA-Public Use
  Company Number: CA-TEVA-2021-CA-1890337

PATIENT
  Age: 70 Year
  Sex: Male

DRUGS (2)
  1. ETOPOSIDE INJECTION [Suspect]
     Active Substance: ETOPOSIDE
     Route: 065
  2. CISPLATIN INJECTION, BPSINGLE DOSE VIALS.10MG/10ML, 50MG/50ML AND 100M [Suspect]
     Active Substance: CISPLATIN
     Route: 065

REACTIONS (1)
  - Febrile neutropenia [Fatal]
